FAERS Safety Report 5391623-4 (Version None)
Quarter: 2007Q3

REPORT INFORMATION
  Report Type: 
  Country: None (occurrence: None)
  Receive Date: 20070717
  Receipt Date: 20070703
  Transmission Date: 20080115
  Serious: Yes (Life-Threatening)
  Sender: FDA-Public Use
  Company Number: B0478677A

PATIENT
  Age: 54 Year
  Sex: Female

DRUGS (3)
  1. LITHIUM SALT (FORMULATION UNKNOWN) (GENERIC) (LITHIUM SALT) [Suspect]
     Indication: MANIA
  2. RISPERIDONE [Suspect]
     Indication: MANIA
  3. BIPERIDEN (FORMULATION UNKNOWN) (GENERIC) (BIPERIDEN) [Suspect]
     Indication: MANIA

REACTIONS (11)
  - DEEP VEIN THROMBOSIS [None]
  - DRUG LEVEL BELOW THERAPEUTIC [None]
  - EXTRAPYRAMIDAL DISORDER [None]
  - FIBRIN D DIMER INCREASED [None]
  - FIBRIN DEGRADATION PRODUCTS INCREASED [None]
  - GLASGOW COMA SCALE ABNORMAL [None]
  - HAEMOGLOBIN DECREASED [None]
  - HYPERTHYROIDISM [None]
  - NEUROLEPTIC MALIGNANT SYNDROME [None]
  - PNEUMONIA [None]
  - URINARY INCONTINENCE [None]
